FAERS Safety Report 26113358 (Version 1)
Quarter: 2025Q4

REPORT INFORMATION
  Report Type: Spontaneous
  Country: US (occurrence: US)
  Receive Date: 20251202
  Receipt Date: 20251202
  Transmission Date: 20260119
  Serious: Yes (Death, Hospitalization)
  Sender: ASTELLAS
  Company Number: US-ASTELLAS-2025-AER-020855

PATIENT
  Age: 8 Decade
  Sex: Male

DRUGS (2)
  1. PADCEV [Suspect]
     Active Substance: ENFORTUMAB VEDOTIN-EJFV
     Indication: Bladder cancer
     Dosage: FIRST DOSE
     Route: 065
  2. PEMBROLIZUMAB [Suspect]
     Active Substance: PEMBROLIZUMAB
     Indication: Bladder cancer
     Dosage: FIRST DOSE
     Route: 065

REACTIONS (2)
  - Skin reaction [Fatal]
  - Toxic epidermal necrolysis [Fatal]
